FAERS Safety Report 9072223 (Version 1)
Quarter: 2013Q1

REPORT INFORMATION
  Report Type: Report from Study
  Country: US (occurrence: US)
  Receive Date: 20130129
  Receipt Date: 20130129
  Transmission Date: 20140127
  Serious: No
  Sender: FDA-Public Use
  Company Number: US-ABBOTT-12P-163-0942659-00

PATIENT
  Sex: Female
  Weight: 27.69 kg

DRUGS (5)
  1. HUMIRA 40 MG/0.8 ML PEN [Suspect]
     Indication: JUVENILE IDIOPATHIC ARTHRITIS
     Dates: start: 201110, end: 20120511
  2. HUMIRA 40 MG/0.8 ML PEN [Suspect]
     Dates: start: 20120512
  3. FOLIC ACID [Concomitant]
     Indication: VITAMIN SUPPLEMENTATION
  4. TYLENOL [Concomitant]
     Indication: JUVENILE IDIOPATHIC ARTHRITIS
  5. FISH OIL [Concomitant]
     Indication: SUPPLEMENTATION THERAPY

REACTIONS (4)
  - Drug ineffective [Not Recovered/Not Resolved]
  - Eye swelling [Recovered/Resolved]
  - Abdominal pain upper [Not Recovered/Not Resolved]
  - Allergy to plants [Not Recovered/Not Resolved]
